FAERS Safety Report 24452826 (Version 1)
Quarter: 2024Q4

REPORT INFORMATION
  Report Type: Spontaneous
  Country: US (occurrence: US)
  Receive Date: 20241017
  Receipt Date: 20241017
  Transmission Date: 20250114
  Serious: No
  Sender: SUNOVION
  Company Number: US-UROVANT SCIENCES GMBH-202404-URV-000575

PATIENT
  Sex: Female
  Weight: 79.365 kg

DRUGS (1)
  1. GEMTESA [Suspect]
     Active Substance: VIBEGRON
     Indication: Urinary tract disorder
     Dosage: UNK, QD

REACTIONS (1)
  - Inappropriate schedule of product administration [Unknown]
